FAERS Safety Report 17213184 (Version 6)
Quarter: 2021Q1

REPORT INFORMATION
  Report Type: Report from Study
  Country: US (occurrence: US)
  Receive Date: 20191230
  Receipt Date: 20210104
  Transmission Date: 20210419
  Serious: No
  Sender: FDA-Public Use
  Company Number: US-IPSEN BIOPHARMACEUTICALS, INC.-2018-08680

PATIENT
  Age: 16 Year
  Sex: Male
  Weight: 36.3 kg

DRUGS (13)
  1. DYSPORT [Suspect]
     Active Substance: ABOBOTULINUMTOXINA
     Indication: MUSCLE SPASTICITY
     Dosage: 1000U? QUADRICEPS, BICEPS, FLEXOR CARPI RADIALIS AND ULNARIS, FLEXOR DIGITORUM PROFUNDUS, HAMSTRING
     Route: 030
     Dates: start: 20170801, end: 20170801
  2. DYSPORT [Suspect]
     Active Substance: ABOBOTULINUMTOXINA
     Indication: OFF LABEL USE
  3. NEURONTIN [Concomitant]
     Active Substance: GABAPENTIN
     Indication: MUSCLE SPASTICITY
     Route: 048
     Dates: start: 20130801
  4. MULTIVITAMIN [Concomitant]
     Active Substance: VITAMINS
     Indication: GENERAL PHYSICAL CONDITION
     Dosage: ONE TABLET , QD DAILY
  5. CABIDOPA?LEVODOPA [Concomitant]
     Indication: MUSCLE SPASTICITY
  6. PHENOL/ALCOHOL INJECTIONS [Concomitant]
     Indication: MUSCLE SPASTICITY
     Route: 030
     Dates: start: 20170801, end: 20170801
  7. PHENOL/ALCOHOL INJECTIONS [Concomitant]
     Route: 030
     Dates: start: 20171228, end: 20171228
  8. TIZANIDINE. [Concomitant]
     Active Substance: TIZANIDINE
     Indication: MUSCLE SPASTICITY
     Route: 048
     Dates: start: 20170101
  9. HYDROXYZINE [Concomitant]
     Active Substance: HYDROXYZINE HYDROCHLORIDE
     Indication: MYALGIA
     Dosage: PRN AS NEEDED
  10. DYSPORT [Suspect]
     Active Substance: ABOBOTULINUMTOXINA
     Indication: MUSCLE SPASTICITY
  11. BENADRYL [Concomitant]
     Active Substance: DIPHENHYDRAMINE HYDROCHLORIDE
     Indication: PRURITUS
     Dosage: PRN AS REQUIRED
  12. BACLOFEN. [Concomitant]
     Active Substance: BACLOFEN
     Indication: MUSCLE SPASTICITY
     Route: 048
     Dates: start: 20120101
  13. DIAZEPAM. [Concomitant]
     Active Substance: DIAZEPAM
     Indication: SEIZURE PROPHYLAXIS
     Dosage: PRN AS NEEDED

REACTIONS (5)
  - Off label use [Unknown]
  - Haematoma muscle [Recovered/Resolved]
  - Arthralgia [Recovered/Resolved]
  - Back pain [Not Recovered/Not Resolved]
  - Oropharyngeal pain [Recovered/Resolved]

NARRATIVE: CASE EVENT DATE: 20170801
